FAERS Safety Report 13133977 (Version 3)
Quarter: 2017Q4

REPORT INFORMATION
  Report Type: Spontaneous
  Country: US (occurrence: US)
  Receive Date: 20170120
  Receipt Date: 20171115
  Transmission Date: 20180320
  Serious: Yes (Life-Threatening, Other)
  Sender: FDA-Public Use
  Company Number: US-SAOL THERAPEUTICS-2017SAO00099

PATIENT
  Sex: Female

DRUGS (23)
  1. BACLOFEN. [Suspect]
     Active Substance: BACLOFEN
     Dosage: 141.7 ?G, \DAY
     Route: 037
  2. BUPIVACAINE. [Suspect]
     Active Substance: BUPIVACAINE
     Dosage: 12 MG, \DAY
     Route: 037
  3. BACLOFEN. [Suspect]
     Active Substance: BACLOFEN
     Indication: PAIN
  4. BACLOFEN. [Suspect]
     Active Substance: BACLOFEN
     Dosage: 465.1 ?G, \DAY-MAX
     Route: 037
  5. BUPIVACAINE. [Suspect]
     Active Substance: BUPIVACAINE
     Dosage: 1.547 MG, \DAY
     Route: 037
  6. BACLOFEN. [Suspect]
     Active Substance: BACLOFEN
     Indication: PAIN
  7. BACLOFEN. [Suspect]
     Active Substance: BACLOFEN
     Indication: POST LAMINECTOMY SYNDROME
  8. BUPIVACAINE. [Suspect]
     Active Substance: BUPIVACAINE
     Dosage: 1.537 MG, \DAY
     Route: 037
  9. MORPHINE [Suspect]
     Active Substance: MORPHINE
     Dosage: 1.003 MG, \DAY
     Route: 037
  10. MORPHINE [Suspect]
     Active Substance: MORPHINE
     Dosage: 1.280 MG, \DAY
     Route: 037
  11. SUFENTA [Suspect]
     Active Substance: SUFENTANIL CITRATE
     Dosage: 35.64 ?G, \DAY
     Route: 037
  12. BACLOFEN. [Suspect]
     Active Substance: BACLOFEN
     Indication: PAIN
     Dosage: 106 ?G, \DAY
     Route: 037
  13. COMPOUNDED BACLOFEN [Suspect]
     Active Substance: BACLOFEN
     Indication: POST LAMINECTOMY SYNDROME
  14. BUPIVACAINE. [Suspect]
     Active Substance: BUPIVACAINE
     Dosage: 3.564 MG, \DAY
     Route: 037
  15. MORPHINE [Suspect]
     Active Substance: MORPHINE
     Dosage: 1.272 MG, \DAY
     Route: 037
  16. MORPHINE [Suspect]
     Active Substance: MORPHINE
     Dosage: 4.201 MG, \DAY-MAX
     Route: 037
  17. FENTANYL. [Suspect]
     Active Substance: FENTANYL
  18. COMPOUNDED BACLOFEN [Suspect]
     Active Substance: BACLOFEN
     Indication: PAIN
     Dosage: 264 ?G, \DAY
     Route: 037
  19. COMPOUNDED BACLOFEN [Suspect]
     Active Substance: BACLOFEN
     Indication: PAIN
  20. BACLOFEN. [Suspect]
     Active Substance: BACLOFEN
     Indication: POST LAMINECTOMY SYNDROME
     Dosage: 85.15 ?G, \DAY
     Route: 037
  21. BUPIVACAINE. [Suspect]
     Active Substance: BUPIVACAINE
     Dosage: 5.076 MG, \DAY-MAX
     Route: 037
  22. SUFENTA [Suspect]
     Active Substance: SUFENTANIL CITRATE
     Dosage: 62 ?G, \DAY
     Route: 037
  23. DILAUDID [Suspect]
     Active Substance: HYDROMORPHONE HYDROCHLORIDE
     Route: 048

REACTIONS (21)
  - Medical device discomfort [Unknown]
  - Off label use [Unknown]
  - Constipation [Unknown]
  - Fall [Unknown]
  - Extrasystoles [Unknown]
  - Confusional state [Unknown]
  - Medical device site nerve damage [Unknown]
  - Incoherent [Unknown]
  - Weight decreased [Unknown]
  - Arthralgia [Unknown]
  - Infusion site fibrosis [Unknown]
  - Hypoaesthesia [Unknown]
  - Pain [Unknown]
  - Overdose [Unknown]
  - Pain in extremity [Unknown]
  - Gait inability [Unknown]
  - Muscle tightness [Unknown]
  - Adverse drug reaction [Unknown]
  - Neuralgia [Unknown]
  - Therapeutic response decreased [Unknown]
  - Infusion site mass [Unknown]

NARRATIVE: CASE EVENT DATE: 2011
